FAERS Safety Report 18511477 (Version 6)
Quarter: 2021Q1

REPORT INFORMATION
  Report Type: Report from Study
  Country: CA (occurrence: CA)
  Receive Date: 20201117
  Receipt Date: 20210122
  Transmission Date: 20210419
  Serious: Yes (Life-Threatening, Other)
  Sender: FDA-Public Use
  Company Number: CA-AMGEN-CANSL2020158880

PATIENT
  Age: 59 Year
  Sex: Male
  Weight: 81 kg

DRUGS (9)
  1. MVASI [Suspect]
     Active Substance: BEVACIZUMAB-AWWB
     Dosage: 760 MILLIGRAM, Q2WK
     Route: 042
     Dates: start: 20201110
  2. MVASI [Suspect]
     Active Substance: BEVACIZUMAB-AWWB
     Dosage: 820 MILLIGRAM, Q2WK
     Route: 042
     Dates: start: 20201124
  3. MVASI [Suspect]
     Active Substance: BEVACIZUMAB-AWWB
     Dosage: 820 MILLIGRAM, Q2WK
     Route: 042
  4. MVASI [Suspect]
     Active Substance: BEVACIZUMAB-AWWB
     Dosage: 760 MILLIGRAM, Q2WK
     Route: 042
     Dates: start: 20201027
  5. MVASI [Suspect]
     Active Substance: BEVACIZUMAB-AWWB
     Indication: GLIOBLASTOMA MULTIFORME
     Dosage: 760 MILLIGRAM, Q2WK
     Route: 042
     Dates: start: 20200929
  6. MVASI [Suspect]
     Active Substance: BEVACIZUMAB-AWWB
     Dosage: 760 MILLIGRAM, Q2WK
     Route: 042
     Dates: start: 2020
  7. MVASI [Suspect]
     Active Substance: BEVACIZUMAB-AWWB
     Dosage: 820 MILLIGRAM, Q2WK
     Route: 042
  8. MVASI [Suspect]
     Active Substance: BEVACIZUMAB-AWWB
     Dosage: 820 MILLIGRAM, Q2WK
     Route: 042
  9. MVASI [Suspect]
     Active Substance: BEVACIZUMAB-AWWB
     Dosage: 10 MILLIGRAM/KILOGRAM, Q2WK
     Route: 042

REACTIONS (6)
  - Pyrexia [Recovered/Resolved]
  - Fatigue [Not Recovered/Not Resolved]
  - Malaise [Not Recovered/Not Resolved]
  - Somnolence [Not Recovered/Not Resolved]
  - Condition aggravated [Unknown]
  - Blood pressure abnormal [Not Recovered/Not Resolved]

NARRATIVE: CASE EVENT DATE: 20201110
